FAERS Safety Report 25963981 (Version 1)
Quarter: 2025Q4

REPORT INFORMATION
  Report Type: Spontaneous
  Country: CN (occurrence: CN)
  Receive Date: 20251027
  Receipt Date: 20251027
  Transmission Date: 20260117
  Serious: Yes (Other)
  Sender: PACIRA
  Company Number: CN-ORG100016242-2025000428

PATIENT

DRUGS (13)
  1. BUPIVACAINE [Suspect]
     Active Substance: BUPIVACAINE
     Indication: Nerve block
     Dosage: 15ML MIXTURE OF 1.33% LIPOSOMAL BUPIVACAINE INJECTION AND 0.5% LEVOBUPIVACAINE HYDROCHLORIDE
     Route: 050
  2. BUPIVACAINE [Suspect]
     Active Substance: BUPIVACAINE
     Indication: Nerve block
     Dosage: 5ML MIXTURE OF 1.33% LIPOSOMAL BUPIVACAINE INJECTION AND 0.5% LEVOBUPIVACAINE HYDROCHLORIDE
     Route: 050
  3. LEVOBUPIVACAINE HYDROCHLORIDE [Suspect]
     Active Substance: LEVOBUPIVACAINE HYDROCHLORIDE
     Indication: Nerve block
     Dosage: 15ML MIXTURE OF 1.33% LIPOSOMAL BUPIVACAINE INJECTION AND 0.5% LEVOBUPIVACAINE HYDROCHLORIDE
     Route: 050
  4. LEVOBUPIVACAINE HYDROCHLORIDE [Suspect]
     Active Substance: LEVOBUPIVACAINE HYDROCHLORIDE
     Indication: Nerve block
     Dosage: 5ML MIXTURE OF 1.33% LIPOSOMAL BUPIVACAINE INJECTION AND 0.5% LEVOBUPIVACAINE HYDROCHLORIDE
     Route: 050
  5. PROPOFOL [Concomitant]
     Active Substance: PROPOFOL
     Indication: Induction of anaesthesia
     Dosage: 1.5?2 MG/KG
     Route: 042
  6. REMIFENTANIL [Concomitant]
     Active Substance: REMIFENTANIL
     Indication: Induction of anaesthesia
     Dosage: 2?3 ?G/KG
     Route: 042
  7. REMIFENTANIL [Concomitant]
     Active Substance: REMIFENTANIL
     Indication: Induction of anaesthesia
     Dosage: 1?3 NG/ML
     Route: 050
  8. CISATRACURIUM [Concomitant]
     Active Substance: CISATRACURIUM
     Indication: Induction of anaesthesia
     Dosage: 0.2 MG/KG
     Route: 042
  9. Sevoflurane inhalation [Concomitant]
     Indication: Maintenance of anaesthesia
     Dosage: 0.6?1 MAC
     Route: 050
  10. FLURBIPROFEN AXETIL [Concomitant]
     Active Substance: FLURBIPROFEN AXETIL
     Indication: Product used for unknown indication
     Route: 042
  11. ONDANSETRON [Concomitant]
     Active Substance: ONDANSETRON
     Indication: Prophylaxis
     Route: 042
  12. NEOSTIGMINE [Concomitant]
     Active Substance: NEOSTIGMINE
     Indication: Neuromuscular blockade reversal
     Route: 042
  13. ATROPINE [Concomitant]
     Active Substance: ATROPINE
     Indication: Neuromuscular blockade reversal
     Route: 042

REACTIONS (3)
  - Horner^s syndrome [Unknown]
  - Off label use [Unknown]
  - Labelled drug-drug interaction medication error [Unknown]
